FAERS Safety Report 14186999 (Version 1)
Quarter: 2017Q4

REPORT INFORMATION
  Report Type: Spontaneous
  Country: US (occurrence: US)
  Receive Date: 20171113
  Receipt Date: 20171113
  Transmission Date: 20180321
  Serious: No
  Sender: FDA-Public Use
  Company Number: None

PATIENT
  Age: 48 Year
  Sex: Female
  Weight: 108 kg

DRUGS (1)
  1. LEVOFLOXCIN [Suspect]
     Active Substance: LEVOFLOXACIN
     Indication: TOOTH ABSCESS
     Dates: start: 20171031, end: 20171106

REACTIONS (3)
  - Joint stiffness [None]
  - Arthralgia [None]
  - Therapy cessation [None]

NARRATIVE: CASE EVENT DATE: 20171101
